FAERS Safety Report 17183643 (Version 1)
Quarter: 2019Q4

REPORT INFORMATION
  Report Type: Spontaneous
  Country: NO (occurrence: NO)
  Receive Date: 20191220
  Receipt Date: 20191220
  Transmission Date: 20200122
  Serious: Yes (Death, Other)
  Sender: FDA-Public Use
  Company Number: NO-PFIZER INC-2019547493

PATIENT
  Age: 77 Year
  Sex: Male

DRUGS (2)
  1. FRAGMIN [Suspect]
     Active Substance: DALTEPARIN SODIUM
     Indication: AORTIC VALVE REPLACEMENT
     Dosage: 7500 IU, 2X/DAY
     Route: 058
     Dates: start: 201907, end: 20191107
  2. FRAGMIN [Suspect]
     Active Substance: DALTEPARIN SODIUM
     Dosage: DOSE REDUCED ON 08NOV2019 DUE TO BLEEDING TENDENCY
     Route: 058
     Dates: start: 20191108

REACTIONS (9)
  - Off label use [Unknown]
  - Circulatory collapse [Fatal]
  - Organ failure [Fatal]
  - Haematuria [Fatal]
  - Gastrointestinal haemorrhage [Fatal]
  - Acute kidney injury [Fatal]
  - Skin haemorrhage [Fatal]
  - Product use in unapproved indication [Unknown]
  - Epistaxis [Fatal]

NARRATIVE: CASE EVENT DATE: 201907
